FAERS Safety Report 10269524 (Version 1)
Quarter: 2014Q3

REPORT INFORMATION
  Report Type: Spontaneous
  Country: CO (occurrence: CO)
  Receive Date: 20140701
  Receipt Date: 20140701
  Transmission Date: 20150326
  Serious: Yes (Hospitalization, Other)
  Sender: FDA-Public Use
  Company Number: CO-PAR PHARMACEUTICAL, INC-2014SCPR009205

PATIENT

DRUGS (1)
  1. ADRENALIN [Suspect]
     Active Substance: EPINEPHRINE
     Dosage: 0.5 MG, SINGLE
     Route: 051

REACTIONS (5)
  - Dyspnoea [None]
  - Hyperhidrosis [None]
  - Stress cardiomyopathy [Recovered/Resolved]
  - Hypotension [None]
  - Wrong drug administered [Unknown]
